FAERS Safety Report 15301468 (Version 3)
Quarter: 2019Q3

REPORT INFORMATION
  Report Type: Spontaneous
  Country: US (occurrence: US)
  Receive Date: 20180821
  Receipt Date: 20190910
  Transmission Date: 20191004
  Serious: No
  Sender: FDA-Public Use
  Company Number: US-SA-2018SA227355

PATIENT
  Sex: Female

DRUGS (1)
  1. DUPIXENT [Suspect]
     Active Substance: DUPILUMAB
     Indication: DERMATITIS ATOPIC
     Dosage: UNK
     Dates: start: 2018

REACTIONS (5)
  - Gingivitis [Unknown]
  - Joint swelling [Recovering/Resolving]
  - Gingival pain [Unknown]
  - Arthralgia [Recovering/Resolving]
  - Condition aggravated [Recovering/Resolving]
